FAERS Safety Report 8224491-3 (Version None)
Quarter: 2012Q1

REPORT INFORMATION
  Report Type: 
  Country: None (occurrence: None)
  Receive Date: 20120321
  Receipt Date: 20120306
  Transmission Date: 20120608
  Serious: Yes (Hospitalization)
  Sender: FDA-Public Use
  Company Number: US-ENDO PHARMACEUTICALS INC.-OPER20120296

PATIENT
  Sex: Female

DRUGS (3)
  1. OPANA ER [Suspect]
     Route: 048
     Dates: start: 20111001, end: 20120228
  2. OPANA ER [Suspect]
     Route: 048
     Dates: start: 20110901, end: 20111001
  3. OPANA ER [Suspect]
     Indication: BACK PAIN
     Route: 048
     Dates: start: 20110601, end: 20110901

REACTIONS (8)
  - HEADACHE [None]
  - CELLULITIS [None]
  - MALAISE [None]
  - NAUSEA [None]
  - PYREXIA [None]
  - BLOOD POTASSIUM DECREASED [None]
  - VOMITING [None]
  - DRUG EFFECT DECREASED [None]
